FAERS Safety Report 17925011 (Version 1)
Quarter: 2020Q2

REPORT INFORMATION
  Report Type: Spontaneous
  Country: US (occurrence: US)
  Receive Date: 20200622
  Receipt Date: 20200622
  Transmission Date: 20200714
  Serious: Yes (Hospitalization)
  Sender: FDA-Public Use
  Company Number: US-SLATE RUN PHARMACEUTICALS-20US000221

PATIENT

DRUGS (2)
  1. VANCOMYCIN HYDROCHLORIDE USP [Suspect]
     Active Substance: VANCOMYCIN HYDROCHLORIDE
     Indication: HERPES SIMPLEX
     Dosage: UNK, POST DELIVERY
     Route: 065
  2. VANCOMYCIN HYDROCHLORIDE USP [Suspect]
     Active Substance: VANCOMYCIN HYDROCHLORIDE
     Dosage: UNK, SINGLE FOUR HOURS PRIOR DELIVERY
     Route: 064

REACTIONS (3)
  - Foetal exposure during delivery [Unknown]
  - Herpes simplex test positive [Recovered/Resolved]
  - Aspartate aminotransferase increased [Unknown]
